FAERS Safety Report 16723001 (Version 2)
Quarter: 2019Q3

REPORT INFORMATION
  Report Type: Report from Study
  Country: FR (occurrence: FR)
  Receive Date: 20190821
  Receipt Date: 20190903
  Transmission Date: 20191005
  Serious: Yes (Other)
  Sender: FDA-Public Use
  Company Number: FR-ROCHE-2376191

PATIENT
  Age: 74 Year
  Sex: Female

DRUGS (2)
  1. BEVACIZUMAB. [Suspect]
     Active Substance: BEVACIZUMAB
     Indication: OVARIAN CANCER
     Dosage: ON 17/JUL/2019, RECEIVED LAST DOSE OF BEVACIZUMAB BEFORE THE EVENT.
     Route: 042
     Dates: start: 20180730
  2. BLINDED ATEZOLIZUMAB [Suspect]
     Active Substance: ATEZOLIZUMAB
     Indication: OVARIAN CANCER
     Dosage: ON 17/JUL/2019, RECEIVED LAST DOSE OF BLINDED ATEZOLIZUMAB BEFORE THE EVENT.
     Route: 042
     Dates: start: 20180730

REACTIONS (4)
  - Alanine aminotransferase increased [Recovered/Resolved]
  - Drug-induced liver injury [Not Recovered/Not Resolved]
  - Aspartate aminotransferase increased [Recovered/Resolved]
  - Blood bilirubin increased [Not Recovered/Not Resolved]

NARRATIVE: CASE EVENT DATE: 20190806
